FAERS Safety Report 5488159-9 (Version None)
Quarter: 2007Q4

REPORT INFORMATION
  Report Type: 
  Country: None (occurrence: None)
  Receive Date: 20071005
  Receipt Date: 20070727
  Transmission Date: 20080405
  Serious: No
  Sender: FDA-Public Use
  Company Number: PHEH2007US10524

PATIENT
  Sex: Female

DRUGS (6)
  1. TEKTURNA [Suspect]
     Dosage: 150 MG, QD, ORAL
     Route: 048
  2. NORVASC [Concomitant]
  3. ATENOLOL [Concomitant]
  4. ATACAND [Concomitant]
  5. CLONIDINE [Concomitant]
  6. LISINOPRIL [Concomitant]

REACTIONS (1)
  - DRUG INTOLERANCE [None]
